FAERS Safety Report 5957345-3 (Version None)
Quarter: 2008Q4

REPORT INFORMATION
  Report Type: 
  Country: None (occurrence: None)
  Receive Date: 20081118
  Receipt Date: 20081104
  Transmission Date: 20090506
  Serious: Yes (Hospitalization)
  Sender: FDA-Public Use
  Company Number: US-AMGEN-US317499

PATIENT
  Sex: Male

DRUGS (19)
  1. ENBREL [Suspect]
     Route: 064
     Dates: start: 20060120, end: 20060224
  2. VITAMIN TAB [Concomitant]
     Route: 064
     Dates: start: 20060221, end: 20060910
  3. PREDNISONE TAB [Concomitant]
     Route: 064
     Dates: start: 20060120, end: 20060423
  4. PREDNISONE TAB [Concomitant]
     Route: 064
     Dates: start: 20060424, end: 20060514
  5. PREDNISONE TAB [Concomitant]
     Route: 064
     Dates: start: 20060515, end: 20060910
  6. TUMS [Concomitant]
     Route: 064
     Dates: start: 20060120, end: 20080428
  7. TYLENOL (CAPLET) [Concomitant]
     Route: 064
     Dates: start: 20060110, end: 20060428
  8. AMOXICILLIN [Concomitant]
     Route: 064
     Dates: start: 20060501, end: 20060507
  9. ERYTHROMYCIN [Concomitant]
     Route: 064
     Dates: start: 20060508, end: 20060514
  10. ANTIBIOTIC NOS [Concomitant]
     Dates: start: 20060515, end: 20060522
  11. ROBITUSSIN [Concomitant]
     Route: 064
     Dates: start: 20080508, end: 20080514
  12. TYLENOL COLD AND FLU [Concomitant]
     Dates: start: 20060515, end: 20060530
  13. TERBUTALINE SULFATE [Concomitant]
     Route: 064
     Dates: start: 20060829, end: 20060829
  14. UNSPECIFIED INTRAVENOUS FLUIDS [Concomitant]
     Route: 064
  15. ANTIBIOTIC NOS [Concomitant]
     Route: 064
     Dates: start: 20060829, end: 20060830
  16. TUMS [Concomitant]
     Route: 064
     Dates: start: 20060815, end: 20060901
  17. ZITHROMAX [Concomitant]
     Route: 064
     Dates: start: 20060903, end: 20060908
  18. AMPICILLIN [Concomitant]
     Route: 064
     Dates: start: 20060903, end: 20060908
  19. UNSPECIFIED STEROIDS [Concomitant]
     Route: 064
     Dates: start: 20060903, end: 20060904

REACTIONS (3)
  - JAUNDICE NEONATAL [None]
  - PREMATURE BABY [None]
  - SEPSIS NEONATAL [None]
